FAERS Safety Report 6964966-8 (Version None)
Quarter: 2010Q3

REPORT INFORMATION
  Report Type: 
  Country: None (occurrence: None)
  Receive Date: 20100901
  Receipt Date: 20100819
  Transmission Date: 20110219
  Serious: Yes (Disabling, Other)
  Sender: FDA-Public Use
  Company Number: A-US2010-36111

PATIENT
  Age: 20 Year
  Sex: Female

DRUGS (5)
  1. TRACLEER [Suspect]
     Indication: PULMONARY ARTERIAL HYPERTENSION
     Dosage: 125 MG, BID, ORAL; 62.5 MG, BID, ORAL
     Route: 048
     Dates: start: 20100219, end: 20100318
  2. TRACLEER [Suspect]
     Indication: PULMONARY ARTERIAL HYPERTENSION
     Dosage: 125 MG, BID, ORAL; 62.5 MG, BID, ORAL
     Route: 048
     Dates: start: 20100319, end: 20100419
  3. REVATIO [Concomitant]
  4. COUMADIN [Concomitant]
  5. TREPROSTINOL (TREPROSTINIL) [Concomitant]

REACTIONS (3)
  - HYPOAESTHESIA [None]
  - PAIN IN EXTREMITY [None]
  - PARAESTHESIA [None]
